FAERS Safety Report 5867559-9 (Version None)
Quarter: 2008Q3

REPORT INFORMATION
  Report Type: 
  Country: None (occurrence: None)
  Receive Date: 20080902
  Receipt Date: 20070924
  Transmission Date: 20090109
  Serious: No
  Sender: FDA-Public Use
  Company Number: US-ABBOTT-07P-163-0418192-00

PATIENT
  Sex: Female
  Weight: 70.37 kg

DRUGS (2)
  1. DEPAKOTE ER [Suspect]
     Indication: MIGRAINE
     Route: 048
     Dates: start: 20070915
  2. OLOPATADINE HYDROCHLORIDE [Concomitant]
     Indication: DRUG USE FOR UNKNOWN INDICATION

REACTIONS (5)
  - ALOPECIA [None]
  - ASTHENIA [None]
  - DIZZINESS [None]
  - MUCOSAL DRYNESS [None]
  - PARAESTHESIA ORAL [None]
